FAERS Safety Report 5370054-7 (Version None)
Quarter: 2007Q2

REPORT INFORMATION
  Report Type: 
  Country: None (occurrence: None)
  Receive Date: 20070613
  Receipt Date: 20060828
  Transmission Date: 20071010
  Serious: Yes (Other)
  Sender: FDA-Public Use
  Company Number: WWISSUE-19

PATIENT
  Age: 57 Year
  Sex: Female
  Weight: 67.1324 kg

DRUGS (1)
  1. LITHIUM CARBONATE [Suspect]
     Dosage: 300 MG

REACTIONS (1)
  - HYPERSENSITIVITY [None]
